FAERS Safety Report 24855476 (Version 1)
Quarter: 2025Q1

REPORT INFORMATION
  Report Type: Spontaneous
  Country: DE (occurrence: DE)
  Receive Date: 20250117
  Receipt Date: 20250117
  Transmission Date: 20250408
  Serious: Yes (Hospitalization)
  Sender: TEVA
  Company Number: DE-TEVA-VS-3284807

PATIENT
  Age: 43 Year
  Sex: Female
  Weight: 89 kg

DRUGS (10)
  1. LAMOTRIGINE [Suspect]
     Active Substance: LAMOTRIGINE
     Indication: Wrong patient received product
     Route: 065
     Dates: start: 20201216, end: 20201216
  2. FOLIC ACID [Suspect]
     Active Substance: FOLIC ACID
     Indication: Wrong patient received product
     Route: 065
     Dates: start: 20201216, end: 20201216
  3. VITAMIN D [Suspect]
     Active Substance: VITAMIN D NOS
     Indication: Wrong patient received product
     Route: 065
     Dates: start: 20201216, end: 20201216
  4. LACOSAMIDE [Suspect]
     Active Substance: LACOSAMIDE
     Indication: Product used for unknown indication
     Route: 065
  5. FYCOMPA [Suspect]
     Active Substance: PERAMPANEL
     Indication: Wrong patient received product
     Route: 048
     Dates: start: 20201216, end: 20201216
  6. BACLOFEN [Suspect]
     Active Substance: BACLOFEN
     Indication: Wrong patient received product
     Route: 065
     Dates: start: 20201216, end: 20201216
  7. LORAZEPAM [Suspect]
     Active Substance: LORAZEPAM
     Indication: Wrong patient received product
     Route: 065
     Dates: start: 20201216, end: 20201216
  8. LEVETIRACETAM [Suspect]
     Active Substance: LEVETIRACETAM
     Indication: Wrong patient received product
     Route: 065
     Dates: start: 20201216, end: 20201216
  9. LEVOTHYROXINE [Suspect]
     Active Substance: LEVOTHYROXINE
     Indication: Wrong patient received product
     Route: 065
     Dates: start: 20201216, end: 20201216
  10. TOPIRAMATE [Concomitant]
     Active Substance: TOPIRAMATE
     Indication: Product used for unknown indication
     Route: 065

REACTIONS (4)
  - Hypotension [Unknown]
  - Self-medication [Unknown]
  - Fatigue [Unknown]
  - Wrong patient received product [Unknown]

NARRATIVE: CASE EVENT DATE: 20201216
